FAERS Safety Report 5300742-X (Version None)
Quarter: 2007Q2

REPORT INFORMATION
  Report Type: 
  Country: None (occurrence: None)
  Receive Date: 20070418
  Receipt Date: 20070412
  Transmission Date: 20071010
  Serious: Yes (Hospitalization, Other)
  Sender: FDA-Public Use
  Company Number: AU-SANOFI-SYNTHELABO-A01200703881

PATIENT
  Age: 80 Year
  Sex: Male

DRUGS (2)
  1. PLAQUENIL [Suspect]
     Indication: RHEUMATOID ARTHRITIS
     Route: 048
     Dates: start: 20070101
  2. METHOTREXATE [Concomitant]
     Dosage: UNK
     Route: 065

REACTIONS (3)
  - CATATONIA [None]
  - CONFUSIONAL STATE [None]
  - DEPRESSION [None]
